FAERS Safety Report 12680979 (Version 1)
Quarter: 2016Q3

REPORT INFORMATION
  Report Type: Spontaneous
  Country: GB (occurrence: GB)
  Receive Date: 20160824
  Receipt Date: 20160824
  Transmission Date: 20161109
  Serious: Yes (Other)
  Sender: FDA-Public Use
  Company Number: GB-PFIZER INC-3157214

PATIENT
  Age: 70 Year
  Sex: Female

DRUGS (8)
  1. FELODIPINE. [Concomitant]
     Active Substance: FELODIPINE
     Indication: HYPERTENSION
     Dosage: 2.5 MG, FREQ: 1 DAY; INTERVAL:1
  2. SIMVASTATIN. [Concomitant]
     Active Substance: SIMVASTATIN
     Indication: BLOOD CHOLESTEROL INCREASED
     Dosage: 40 MG, 1X/DAY (40 MG, FREQ: 1 DAY; INTERVAL:1)
  3. SEREVENT DISKUS [Concomitant]
     Active Substance: SALMETEROL XINAFOATE
     Indication: CHRONIC OBSTRUCTIVE PULMONARY DISEASE
     Dosage: 50 MG, 2X/DAY (50 MG, FREQ: 2 DAY; INTERVAL:1)
  4. LANZOPRAZOL [Concomitant]
     Active Substance: LANSOPRAZOLE
     Indication: HIATUS HERNIA
     Dosage: 30 MG, 1X/DAY (30 MG, FREQ: 1 DAY; INTERVAL: 1)
  5. COD LIVER OIL [Concomitant]
     Active Substance: COD LIVER OIL
     Indication: MUSCULOSKELETAL STIFFNESS
     Dosage: FIRST THING ONE HOUR BEFORE FOOD
  6. ZOLEDRONIC ACID [Suspect]
     Active Substance: ZOLEDRONIC ACID
     Dosage: UNK
     Route: 041
     Dates: start: 20151215
  7. ACCRETE D3 [Concomitant]
     Indication: OSTEOPOROSIS
     Dosage: FREQ: 2 DAY; INTERVAL: 1
  8. ASACOL [Concomitant]
     Active Substance: MESALAMINE
     Indication: ERYTHEMA
     Dosage: 800 MG, FREQ: 3 DAY; INTERVAL: 1

REACTIONS (8)
  - Muscle spasms [Recovered/Resolved]
  - Movement disorder [Unknown]
  - Back pain [Unknown]
  - Body temperature increased [Unknown]
  - Spinal pain [Unknown]
  - Musculoskeletal pain [Unknown]
  - Bone pain [Unknown]
  - Tremor [Unknown]

NARRATIVE: CASE EVENT DATE: 20151215
